FAERS Safety Report 17778542 (Version 3)
Quarter: 2020Q2

REPORT INFORMATION
  Report Type: Spontaneous
  Country: FR (occurrence: FR)
  Receive Date: 20200514
  Receipt Date: 20200625
  Transmission Date: 20200714
  Serious: Yes (Life-Threatening, Hospitalization, Other)
  Sender: FDA-Public Use
  Company Number: FR-CELLTRION INC.-2020FR022184

PATIENT

DRUGS (6)
  1. RITUXIMAB (UNKNOWN) [Suspect]
     Active Substance: RITUXIMAB
     Indication: GRANULOMATOSIS WITH POLYANGIITIS
     Dosage: FOUR INFUSIONS (375 MG/M2) WERE WEEKLY
     Route: 041
     Dates: start: 201910
  2. RITUXIMAB (UNKNOWN) [Suspect]
     Active Substance: RITUXIMAB
     Dosage: MAINTENANCE THERAPY; 500 MG/MAINTENANCE THERAPY
     Route: 065
     Dates: start: 20200305
  3. PREDNISONE. [Suspect]
     Active Substance: PREDNISONE
     Indication: GRANULOMATOSIS WITH POLYANGIITIS
     Dosage: 15 MG DAILY
     Route: 065
  4. NEBIVOLOL. [Concomitant]
     Active Substance: NEBIVOLOL
     Indication: HYPERTENSION
     Dosage: UNK
  5. RITUXIMAB (UNKNOWN) [Suspect]
     Active Substance: RITUXIMAB
     Dosage: UNK
     Route: 065
  6. HYDROXYCHLOROQUINE SULFATE. [Suspect]
     Active Substance: HYDROXYCHLOROQUINE SULFATE
     Indication: CORONAVIRUS INFECTION
     Dosage: 200 MG/8 HOUR FOR 10 DAYS FROM DAY #19
     Dates: start: 20200325

REACTIONS (12)
  - COVID-19 [Recovered/Resolved]
  - Headache [Recovering/Resolving]
  - Pyrexia [Recovering/Resolving]
  - Myalgia [Recovering/Resolving]
  - Acute respiratory distress syndrome [Recovered/Resolved]
  - Respiratory failure [Recovered/Resolved]
  - Off label use [Unknown]
  - Cough [Recovering/Resolving]
  - Lung opacity [Recovering/Resolving]
  - COVID-19 pneumonia [Recovered/Resolved]
  - Interstitial lung disease [Recovering/Resolving]
  - Therapeutic response unexpected [Unknown]

NARRATIVE: CASE EVENT DATE: 202003
